FAERS Safety Report 6307522-7 (Version None)
Quarter: 2009Q3

REPORT INFORMATION
  Report Type: 
  Country: None (occurrence: None)
  Receive Date: 20090813
  Receipt Date: 20090805
  Transmission Date: 20100115
  Serious: Yes (Hospitalization, Other)
  Sender: FDA-Public Use
  Company Number: US-JNJFOC-20090802591

PATIENT
  Sex: Male
  Weight: 81.65 kg

DRUGS (1)
  1. RISPERDAL CONSTA [Suspect]
     Indication: SCHIZOPHRENIA
     Route: 030

REACTIONS (6)
  - ABDOMINAL PAIN [None]
  - ENZYME ABNORMALITY [None]
  - HYPERTENSION [None]
  - LABORATORY TEST ABNORMAL [None]
  - PROTEIN URINE PRESENT [None]
  - WHITE BLOOD CELL COUNT INCREASED [None]
